FAERS Safety Report 5082781-X (Version None)
Quarter: 2006Q3

REPORT INFORMATION
  Report Type: 
  Country: None (occurrence: None)
  Receive Date: 20060817
  Receipt Date: 20060807
  Transmission Date: 20061208
  Serious: Yes (Death)
  Sender: FDA-Public Use
  Company Number: IL-NOVOPROD-255912

PATIENT
  Sex: Male

DRUGS (3)
  1. NOVOSEVEN [Suspect]
     Indication: HAEMORRHAGE
     Dosage: 7.2 MG, SINGLE DOSE
     Dates: start: 20060802, end: 20060802
  2. APROTININ [Concomitant]
     Indication: POSTOPERATIVE CARE
  3. BLOOD CELLS, PACKED HUMAN [Concomitant]
     Indication: POST PROCEDURAL HAEMORRHAGE

REACTIONS (1)
  - DEATH [None]
